FAERS Safety Report 12374290 (Version 1)
Quarter: 2016Q2

REPORT INFORMATION
  Report Type: Spontaneous
  Country: US (occurrence: US)
  Receive Date: 20160517
  Receipt Date: 20160517
  Transmission Date: 20160815
  Serious: Yes (Other)
  Sender: FDA-Public Use
  Company Number: US-BAUSCH-BL-2016-011353

PATIENT
  Age: 39 Year
  Sex: Female

DRUGS (1)
  1. RUCONEST [Suspect]
     Active Substance: HUMAN C1-ESTERASE INHIBITOR
     Indication: HEREDITARY ANGIOEDEMA
     Dosage: AS NEEDED
     Route: 065
     Dates: start: 20160426

REACTIONS (2)
  - Cellulitis [Unknown]
  - Arthropod bite [Unknown]
